FAERS Safety Report 14580030 (Version 1)
Quarter: 2018Q1

REPORT INFORMATION
  Report Type: Spontaneous
  Country: US (occurrence: US)
  Receive Date: 20180228
  Receipt Date: 20180228
  Transmission Date: 20180509
  Serious: Yes (Other)
  Sender: FDA-Public Use
  Company Number: US-MALLINCKRODT-T201800751

PATIENT
  Sex: Female

DRUGS (1)
  1. METHYLIN [Suspect]
     Active Substance: METHYLPHENIDATE HYDROCHLORIDE
     Indication: ATTENTION DEFICIT/HYPERACTIVITY DISORDER
     Dosage: 20 MG, 2 TABS, 4 TIMES A DAY (8 A DAY)
     Route: 048

REACTIONS (12)
  - Nervousness [Unknown]
  - Drug intolerance [Unknown]
  - Drug ineffective [Unknown]
  - Productive cough [Unknown]
  - Throat irritation [Unknown]
  - Fall [Unknown]
  - Ankle fracture [Unknown]
  - Product quality issue [Unknown]
  - Nausea [Unknown]
  - Malaise [Unknown]
  - Abdominal discomfort [Unknown]
  - Hypersensitivity [Unknown]
